FAERS Safety Report 9326328 (Version 1)
Quarter: 2013Q3

REPORT INFORMATION
  Report Type: Spontaneous
  Country: US (occurrence: None)
  Receive Date: 20121005
  Receipt Date: 20121005
  Transmission Date: 20140516
  Serious: Yes (Hospitalization)
  Sender: FDA-Public Use
  Company Number: None

PATIENT
  Age: 66 Year
  Sex: Male
  Weight: 77.11 kg

DRUGS (5)
  1. IMIQUIMOD CREAM (TOLMAR INC.)-RLD ZYCLARA [Suspect]
     Indication: ACTINIC KERATOSIS
     Dosage: TOPICAL
     Dates: start: 20120619, end: 20120722
  2. LISINOPRIL [Concomitant]
  3. CELEBREX [Concomitant]
  4. BABY ASPIRIN [Concomitant]
  5. MUTIVITAMIN [Concomitant]

REACTIONS (2)
  - Cerebrovascular accident [None]
  - Nervous system disorder [None]
